FAERS Safety Report 12922301 (Version 4)
Quarter: 2020Q2

REPORT INFORMATION
  Report Type: Spontaneous
  Country: US (occurrence: US)
  Receive Date: 20161108
  Receipt Date: 20200605
  Transmission Date: 20200713
  Serious: Yes (Other)
  Sender: FDA-Public Use
  Company Number: US-PFIZER INC-2016479227

PATIENT
  Age: 66 Year
  Sex: Female
  Weight: 81.5 kg

DRUGS (4)
  1. LYRICA [Suspect]
     Active Substance: PREGABALIN
     Indication: PAIN
     Dosage: 300 MG, 3X/DAY
  2. LYRICA [Suspect]
     Active Substance: PREGABALIN
     Indication: FIBROMYALGIA
     Dosage: 1 DF, 1X/DAY (I CUT BACK TO ONE PILL A DAY)
  3. LYRICA [Suspect]
     Active Substance: PREGABALIN
     Indication: HEAD DISCOMFORT
     Dosage: 300 MG, 2X/DAY(300MG BY MOUTH TWICE DAILY)
     Route: 048
     Dates: start: 2017
  4. LYRICA [Suspect]
     Active Substance: PREGABALIN
     Indication: BALANCE DISORDER
     Dosage: 150 MG, UNK
     Dates: start: 2006

REACTIONS (8)
  - Headache [Unknown]
  - Pain [Not Recovered/Not Resolved]
  - Loss of personal independence in daily activities [Unknown]
  - Malaise [Unknown]
  - Fall [Unknown]
  - Ankle fracture [Unknown]
  - Prescribed overdose [Unknown]
  - Intentional product use issue [Unknown]
